FAERS Safety Report 12305556 (Version 2)
Quarter: 2016Q2

REPORT INFORMATION
  Report Type: Spontaneous
  Country: US (occurrence: US)
  Receive Date: 20160426
  Receipt Date: 20160617
  Transmission Date: 20160815
  Serious: Yes (Hospitalization, Other)
  Sender: FDA-Public Use
  Company Number: US-SUPERNUS PHARMACEUTICALS, INC.-2016SUP00078

PATIENT
  Age: 35 Year
  Sex: Female
  Weight: 73.47 kg

DRUGS (6)
  1. TROKENDI XR [Suspect]
     Active Substance: TOPIRAMATE
     Indication: SEIZURE
     Dosage: TO COMPRISE A THERAPY OF 325 MG, 1X/DAY
     Route: 048
     Dates: start: 201603, end: 2016
  2. TROKENDI XR [Suspect]
     Active Substance: TOPIRAMATE
     Dosage: UNK, TO COMPRISE A THERAPY OF 350 MG DAILY
     Route: 048
     Dates: start: 2016
  3. VALIUM [Concomitant]
     Active Substance: DIAZEPAM
     Dosage: UNK, AS NEEDED
  4. TROKENDI XR [Suspect]
     Active Substance: TOPIRAMATE
     Indication: SEIZURE
     Dosage: UNK UNK, 1X/DAY: TO COMPRISE A THERAPY OF 325 MG
     Route: 048
     Dates: start: 201603, end: 2016
  5. INTRAUTERINE DEVICE (UNSPECIFIED) [Concomitant]
  6. TROKENDI XR [Suspect]
     Active Substance: TOPIRAMATE
     Dosage: UNK, TO COMPRISE A THERAPY OF 350 MG DAILY
     Route: 048
     Dates: start: 2016

REACTIONS (5)
  - Procedural pain [Unknown]
  - Spinal disorder [Unknown]
  - Appendicitis [Recovered/Resolved]
  - Ovarian cyst [Unknown]
  - Nephrolithiasis [Unknown]

NARRATIVE: CASE EVENT DATE: 20160407
